FAERS Safety Report 8050893-4 (Version None)
Quarter: 2012Q1

REPORT INFORMATION
  Report Type: 
  Country: None (occurrence: None)
  Receive Date: 20120117
  Receipt Date: 20120109
  Transmission Date: 20120608
  Serious: Yes (Other)
  Sender: FDA-Public Use
  Company Number: PHHY2012BR002507

PATIENT
  Sex: Female
  Weight: 56 kg

DRUGS (3)
  1. OLCADIL [Suspect]
     Indication: INSOMNIA
     Dosage: 1 MG, DAILY
     Route: 048
  2. SIMVASTATIN [Concomitant]
     Indication: BLOOD CHOLESTEROL
     Dosage: 20 MG, QD
  3. DIOVAN [Suspect]
     Indication: HYPERTENSION
     Dosage: 160 MG,  DAILY
     Route: 048

REACTIONS (1)
  - PARKINSON'S DISEASE [None]
